FAERS Safety Report 14012427 (Version 1)
Quarter: 2017Q3

REPORT INFORMATION
  Report Type: Spontaneous
  Country: SI (occurrence: SI)
  Receive Date: 20170926
  Receipt Date: 20170926
  Transmission Date: 20171128
  Serious: Yes (Other)
  Sender: FDA-Public Use
  Company Number: SI-ASTRAZENECA-2017SE95755

PATIENT
  Age: 20380 Day
  Sex: Female

DRUGS (4)
  1. FASLODEX [Suspect]
     Active Substance: FULVESTRANT
     Indication: BREAST CANCER METASTATIC
     Route: 030
     Dates: start: 20161128
  2. IBRANCE [Suspect]
     Active Substance: PALBOCICLIB
     Indication: BREAST CANCER METASTATIC
     Route: 048
     Dates: start: 20161128, end: 201706
  3. FASLODEX [Suspect]
     Active Substance: FULVESTRANT
     Indication: BREAST CANCER METASTATIC
     Route: 030
     Dates: start: 20161020
  4. NAPROSYN [Concomitant]
     Active Substance: NAPROXEN
     Indication: BONE PAIN

REACTIONS (11)
  - Metastases to bone [Unknown]
  - Dysphagia [Unknown]
  - Off label use [Unknown]
  - Metastases to liver [Unknown]
  - Neutropenia [Recovered/Resolved]
  - Hypersensitivity [Unknown]
  - Electrocardiogram QT prolonged [Recovering/Resolving]
  - Swelling [Unknown]
  - Erythema [Unknown]
  - Tumour marker increased [Unknown]
  - Malignant neoplasm progression [Unknown]

NARRATIVE: CASE EVENT DATE: 20161129
